FAERS Safety Report 4443163-4 (Version None)
Quarter: 2004Q3

REPORT INFORMATION
  Report Type: 
  Country: None (occurrence: None)
  Receive Date: 20040907
  Receipt Date: 20040907
  Transmission Date: 20050211
  Serious: No
  Sender: FDA-Public Use
  Company Number: None

PATIENT
  Age: 16 Year
  Sex: Female
  Weight: 43.0917 kg

DRUGS (2)
  1. CELEXA [Suspect]
     Indication: DEPRESSION
  2. CELEXA [Suspect]
     Indication: OBSESSIVE-COMPULSIVE DISORDER

REACTIONS (25)
  - ABNORMAL DREAMS [None]
  - AGGRESSION [None]
  - ANGER [None]
  - CRYING [None]
  - ECZEMA [None]
  - EMOTIONAL DISORDER [None]
  - FATIGUE [None]
  - FEELING ABNORMAL [None]
  - HALLUCINATION, VISUAL [None]
  - HEADACHE [None]
  - HEART RATE INCREASED [None]
  - HYPERHIDROSIS [None]
  - HYPERSOMNIA [None]
  - HYPOAESTHESIA [None]
  - MUSCLE SPASMS [None]
  - NASOPHARYNGITIS [None]
  - PAIN [None]
  - PANIC DISORDER [None]
  - PARANOIA [None]
  - PERIPHERAL COLDNESS [None]
  - PSORIASIS [None]
  - RETCHING [None]
  - STRABISMUS [None]
  - TREMOR [None]
  - WEIGHT INCREASED [None]
